FAERS Safety Report 15589447 (Version 1)
Quarter: 2018Q4

REPORT INFORMATION
  Report Type: Spontaneous
  Country: US (occurrence: US)
  Receive Date: 20181106
  Receipt Date: 20181106
  Transmission Date: 20190205
  Serious: No
  Sender: FDA-Public Use
  Company Number: US-TEVA-2018-US-971699

PATIENT
  Sex: Female

DRUGS (1)
  1. FLUOCINONIDE ACTAVIS [Suspect]
     Active Substance: FLUOCINONIDE
     Indication: PRURITUS
     Route: 065

REACTIONS (3)
  - Application site erythema [Unknown]
  - Drug ineffective [Unknown]
  - Application site pruritus [Unknown]
